FAERS Safety Report 4808142-3 (Version None)
Quarter: 2005Q4

REPORT INFORMATION
  Report Type: 
  Country: None (occurrence: None)
  Receive Date: 20051021
  Receipt Date: 20030520
  Transmission Date: 20060501
  Serious: Yes (Hospitalization)
  Sender: FDA-Public Use
  Company Number: USA030537583

PATIENT
  Age: 81 Year
  Sex: Male

DRUGS (1)
  1. ZYPREXA [Suspect]
     Indication: AGITATION
     Dosage: 5 MG
     Dates: start: 20010101

REACTIONS (1)
  - WHITE BLOOD CELL COUNT DECREASED [None]
